FAERS Safety Report 11092759 (Version 1)
Quarter: 2015Q2

REPORT INFORMATION
  Report Type: Spontaneous
  Country: KR (occurrence: None)
  Receive Date: 20150504
  Receipt Date: 20150504
  Transmission Date: 20150821
  Serious: Yes (Other)
  Sender: FDA-Public Use
  Company Number: KR-ACS-000079

PATIENT
  Age: 81 Year
  Sex: Male

DRUGS (4)
  1. IMIPENEM AND CILASTATIN [Suspect]
     Active Substance: CILASTATIN SODIUM\IMIPENEM
     Indication: PNEUMONIA
  2. COLISTIN METHANESULFONATE [Suspect]
     Active Substance: COLISTIN SULFATE
     Indication: PNEUMONIA
     Dosage: 2 X 75 MG EVERY 2 DAY(S) RESPIRATORY
     Route: 055
  3. VANCOMYCIN [Suspect]
     Active Substance: VANCOMYCIN
     Indication: PNEUMONIA
  4. LEVOFLOXACIN. [Concomitant]
     Active Substance: LEVOFLOXACIN

REACTIONS (1)
  - No therapeutic response [None]
